FAERS Safety Report 8696271 (Version 3)
Quarter: 2012Q4

REPORT INFORMATION
  Report Type: 
  Country: BR (occurrence: BR)
  Receive Date: 20120801
  Receipt Date: 20120914
  Transmission Date: 20130627
  Serious: Yes (Hospitalization)
  Sender: FDA-Public Use
  Company Number: BR-GE HEALTHCARE MEDICAL DIAGNOSTICS-OMPQ-PR-1207S-0828

PATIENT
  Age: 69 Year

DRUGS (5)
  1. OMNIPAQUE [Suspect]
     Indication: PNEUMONIA
     Route: 042
     Dates: start: 20120702, end: 20120702
  2. OMNIPAQUE [Suspect]
     Indication: DIAGNOSTIC PROCEDURE
  3. DIAMICRON [Concomitant]
  4. METFORMIN [Concomitant]
  5. LOSARTAN [Concomitant]

REACTIONS (9)
  - Septic shock [Recovered/Resolved]
  - Hypotension [Recovered/Resolved]
  - Somnolence [Recovered/Resolved]
  - Depressed level of consciousness [Recovered/Resolved]
  - Pyrexia [Recovered/Resolved]
  - Chills [Recovered/Resolved]
  - Nausea [Recovered/Resolved]
  - Vomiting [Recovered/Resolved]
  - Diarrhoea [Recovered/Resolved]
